FAERS Safety Report 13788682 (Version 1)
Quarter: 2017Q3

REPORT INFORMATION
  Report Type: Spontaneous
  Country: US (occurrence: US)
  Receive Date: 20170725
  Receipt Date: 20170725
  Transmission Date: 20171127
  Serious: No
  Sender: FDA-Public Use
  Company Number: US-JNJFOC-20170704202

PATIENT
  Sex: Male

DRUGS (9)
  1. INSULIN LISPRO [Concomitant]
     Active Substance: INSULIN LISPRO
  2. ASPIRIN. [Concomitant]
     Active Substance: ASPIRIN
  3. IMBRUVICA [Suspect]
     Active Substance: IBRUTINIB
     Indication: PRODUCT USED FOR UNKNOWN INDICATION
     Route: 048
     Dates: start: 20151114, end: 20170517
  4. CARVEDILOL. [Concomitant]
     Active Substance: CARVEDILOL
  5. INVOKANA [Concomitant]
     Active Substance: CANAGLIFLOZIN
  6. LANTUS [Concomitant]
     Active Substance: INSULIN GLARGINE
  7. RAMIPRIL. [Concomitant]
     Active Substance: RAMIPRIL
  8. LIPITOR [Concomitant]
     Active Substance: ATORVASTATIN CALCIUM
  9. EPLERENONE. [Concomitant]
     Active Substance: EPLERENONE

REACTIONS (1)
  - Disease progression [Unknown]
